FAERS Safety Report 6633673-3 (Version None)
Quarter: 2010Q1

REPORT INFORMATION
  Report Type: 
  Country: None (occurrence: None)
  Receive Date: 20100312
  Receipt Date: 20100308
  Transmission Date: 20100710
  Serious: Yes (Hospitalization)
  Sender: FDA-Public Use
  Company Number: BR-AMGEN-ICO247128

PATIENT
  Sex: Female

DRUGS (9)
  1. DARBEPOETIN ALFA [Suspect]
     Indication: RENAL FAILURE CHRONIC
     Route: 058
     Dates: start: 20070523, end: 20080509
  2. VITAMIN B COMPLEX CAP [Concomitant]
     Route: 048
     Dates: start: 20070621
  3. FERROUS SULFATE TAB [Concomitant]
     Route: 048
     Dates: start: 20070401
  4. GLIBENCLAMIDE [Concomitant]
     Route: 048
     Dates: start: 20030101
  5. HYDROCHLOROTHIAZIDE [Concomitant]
     Route: 048
     Dates: start: 20070621
  6. METFORMIN HCL [Concomitant]
     Route: 048
     Dates: start: 20030101
  7. METOPROLOL TARTRATE [Concomitant]
     Route: 048
     Dates: start: 20060101
  8. SIMVASTATIN [Concomitant]
     Route: 048
     Dates: start: 20060101
  9. NIFEDIPINE [Concomitant]
     Route: 048
     Dates: start: 20070526

REACTIONS (3)
  - CONVULSION [None]
  - HYPERGLYCAEMIA [None]
  - LOSS OF CONSCIOUSNESS [None]
